FAERS Safety Report 22233570 (Version 1)
Quarter: 2023Q2

REPORT INFORMATION
  Report Type: Spontaneous
  Country: US (occurrence: US)
  Receive Date: 20230420
  Receipt Date: 20230420
  Transmission Date: 20230722
  Serious: No
  Sender: FDA-Public Use
  Company Number: US-TAKEDA-2023TUS037040

PATIENT
  Age: 60 Year
  Sex: Male

DRUGS (4)
  1. VELAGLUCERASE ALFA [Suspect]
     Active Substance: VELAGLUCERASE ALFA
     Indication: Product used for unknown indication
     Dosage: UNK
     Route: 065
  2. CERDELGA [Suspect]
     Active Substance: ELIGLUSTAT
     Indication: Gaucher^s disease type I
     Dosage: UNK
     Route: 065
  3. MIGLUSTAT [Suspect]
     Active Substance: MIGLUSTAT
     Indication: Product used for unknown indication
     Dosage: UNK
     Route: 065
  4. TALIGLUCERASE ALFA [Suspect]
     Active Substance: TALIGLUCERASE ALFA
     Indication: Product used for unknown indication
     Dosage: UNK
     Route: 065

REACTIONS (1)
  - Chitotriosidase decreased [Unknown]
